FAERS Safety Report 10046266 (Version 1)
Quarter: 2014Q1

REPORT INFORMATION
  Report Type: Spontaneous
  Country: US (occurrence: US)
  Receive Date: 20140331
  Receipt Date: 20140331
  Transmission Date: 20141002
  Serious: No
  Sender: FDA-Public Use
  Company Number: US-BIOGENIDEC-2014BI026648

PATIENT
  Age: 49 Year
  Sex: Female

DRUGS (8)
  1. TECFIDERA [Suspect]
     Indication: MULTIPLE SCLEROSIS
     Route: 048
     Dates: start: 201403
  2. ALEVE [Concomitant]
  3. HYSCYAMINE SULFATE [Concomitant]
  4. NEUROTIN [Concomitant]
  5. NORCO [Concomitant]
  6. VITAMIN B [Concomitant]
  7. VITAMIN D3 [Concomitant]
  8. PRILOSEC [Concomitant]

REACTIONS (2)
  - Pain in extremity [Unknown]
  - Headache [Unknown]
